FAERS Safety Report 4577775-4 (Version None)
Quarter: 2005Q1

REPORT INFORMATION
  Report Type: 
  Country: None (occurrence: None)
  Receive Date: 20050209
  Receipt Date: 20050124
  Transmission Date: 20050727
  Serious: Yes (Death, Hospitalization, Other)
  Sender: FDA-Public Use
  Company Number: 175328

PATIENT
  Age: 54 Year
  Sex: Female
  Weight: 91.6266 kg

DRUGS (4)
  1. AVONEX [Suspect]
     Indication: MULTIPLE SCLEROSIS
     Dosage: 30 UG QW IM
     Route: 030
     Dates: start: 20000616
  2. AVONEX [Suspect]
     Indication: MULTIPLE SCLEROSIS
     Dosage: 30 UG QW IM
     Route: 030
     Dates: start: 20030903
  3. HYDROCHLOROTHIAZIDE [Concomitant]
  4. LOTENSIN [Concomitant]

REACTIONS (2)
  - BREAST CANCER FEMALE [None]
  - METASTASES TO BONE [None]
